FAERS Safety Report 22011220 (Version 1)
Quarter: 2023Q1

REPORT INFORMATION
  Report Type: Spontaneous
  Country: PT (occurrence: PT)
  Receive Date: 20230220
  Receipt Date: 20230220
  Transmission Date: 20230417
  Serious: Yes (Other)
  Sender: FDA-Public Use
  Company Number: PT-FreseniusKabi-FK202302032

PATIENT
  Age: 6 Year
  Sex: Male
  Weight: 21 kg

DRUGS (3)
  1. ROCURONIUM [Suspect]
     Active Substance: ROCURONIUM BROMIDE
     Indication: General anaesthesia
     Dosage: 0.6 MCG.KG?1
     Route: 042
  2. FENTANYL [Suspect]
     Active Substance: FENTANYL
     Indication: General anaesthesia
     Dosage: 2  MCG.KG?1
     Route: 042
  3. PROPOFOL [Suspect]
     Active Substance: PROPOFOL
     Indication: General anaesthesia
     Dosage: 3  MCG.KG?1
     Route: 042

REACTIONS (3)
  - Bradycardia [Unknown]
  - Oxygen saturation decreased [Unknown]
  - Bronchospasm [Unknown]
